FAERS Safety Report 7430275-6 (Version None)
Quarter: 2011Q2

REPORT INFORMATION
  Report Type: 
  Country: None (occurrence: None)
  Receive Date: 20110419
  Receipt Date: 20110419
  Transmission Date: 20111010
  Serious: Yes (Other)
  Sender: FDA-Public Use
  Company Number: None

PATIENT
  Age: 65 Year
  Sex: Male
  Weight: 90.7194 kg

DRUGS (1)
  1. DEXILANT [Suspect]
     Indication: PALPITATIONS
     Dosage: ONE 24 HOURS PO
     Route: 048
     Dates: start: 20110201, end: 20110418

REACTIONS (1)
  - RASH [None]
